FAERS Safety Report 8248446-8 (Version None)
Quarter: 2012Q1

REPORT INFORMATION
  Report Type: 
  Country: None (occurrence: None)
  Receive Date: 20120330
  Receipt Date: 20120319
  Transmission Date: 20120608
  Serious: Yes (Hospitalization)
  Sender: FDA-Public Use
  Company Number: JP-ELI_LILLY_AND_COMPANY-JP201203002471

PATIENT
  Age: 65 Year
  Sex: Female

DRUGS (2)
  1. FORTEO [Suspect]
     Dosage: UNK
     Route: 058
     Dates: start: 20120301, end: 20120306
  2. FORTEO [Suspect]
     Dosage: UNK
     Route: 058
     Dates: start: 20120301

REACTIONS (4)
  - ABDOMINAL DISTENSION [None]
  - CHOLELITHIASIS [None]
  - CONSTIPATION [None]
  - PYREXIA [None]
